FAERS Safety Report 14560461 (Version 1)
Quarter: 2018Q1

REPORT INFORMATION
  Report Type: Report from Study
  Country: None (occurrence: CH)
  Receive Date: 20180222
  Receipt Date: 20180222
  Transmission Date: 20180509
  Serious: Yes (Hospitalization)
  Sender: FDA-Public Use
  Company Number: CH-ABBVIE-18K-151-2263546-00

PATIENT
  Sex: Male

DRUGS (3)
  1. DUODOPA [Suspect]
     Active Substance: CARBIDOPA\LEVODOPA
     Dosage: MORNING DOSE 3.0ML, CONTINUOUS RATE 2.2ML/H, EXTRA DOSE 1.0ML, 16H THERAPY
     Route: 050
     Dates: start: 201802
  2. DUODOPA [Suspect]
     Active Substance: CARBIDOPA\LEVODOPA
     Dosage: MORNING DOSE 3.0ML, CONTINUOUS RATE 2.2ML/H, EXTRA DOSE 1.0ML, 16H THERAPY
     Route: 050
     Dates: start: 20180219, end: 201802
  3. DUODOPA [Suspect]
     Active Substance: CARBIDOPA\LEVODOPA
     Indication: PARKINSON^S DISEASE
     Dosage: MORNING DOSE 3.0ML, CONTINUOUS RATE 2.0ML/H, EXTRA DOSE 1.0ML,16H THERAPY
     Route: 050
     Dates: start: 20170125, end: 20180219

REACTIONS (4)
  - Pneumonia [Unknown]
  - Influenza [Unknown]
  - Akinesia [Unknown]
  - Somnolence [Unknown]
